FAERS Safety Report 23167336 (Version 4)
Quarter: 2024Q3

REPORT INFORMATION
  Report Type: Report from Study
  Country: US (occurrence: US)
  Receive Date: 20231109
  Receipt Date: 20240821
  Transmission Date: 20241017
  Serious: Yes (Hospitalization, Other)
  Sender: ABBVIE
  Company Number: US-ABBVIE-5484478

PATIENT
  Age: 73 Year
  Sex: Male

DRUGS (4)
  1. HUMIRA [Suspect]
     Active Substance: ADALIMUMAB
     Indication: Psoriasis
     Route: 058
  2. HUMIRA [Suspect]
     Active Substance: ADALIMUMAB
     Route: 058
  3. HUMIRA [Suspect]
     Active Substance: ADALIMUMAB
     Route: 058
  4. HUMIRA [Suspect]
     Active Substance: ADALIMUMAB
     Route: 058

REACTIONS (12)
  - Large intestinal ulcer haemorrhage [Recovering/Resolving]
  - Blood glucose decreased [Recovered/Resolved]
  - Anaemia [Recovered/Resolved]
  - Fatigue [Recovering/Resolving]
  - Gastrointestinal surgery [Recovering/Resolving]
  - Haemoglobin decreased [Recovering/Resolving]
  - Arthritis [Not Recovered/Not Resolved]
  - Asthenia [Recovering/Resolving]
  - Blood glucose decreased [Recovering/Resolving]
  - Hypotension [Recovering/Resolving]
  - Papule [Not Recovered/Not Resolved]
  - Memory impairment [Not Recovered/Not Resolved]

NARRATIVE: CASE EVENT DATE: 20240319
